FAERS Safety Report 17565668 (Version 2)
Quarter: 2020Q2

REPORT INFORMATION
  Report Type: Spontaneous
  Country: US (occurrence: US)
  Receive Date: 20200320
  Receipt Date: 20200414
  Transmission Date: 20200713
  Serious: No
  Sender: FDA-Public Use
  Company Number: US-BAYER-2020-048105

PATIENT
  Sex: Female

DRUGS (1)
  1. ZEGERID OTC CAPSULES [Suspect]
     Active Substance: OMEPRAZOLE\SODIUM BICARBONATE
     Route: 048

REACTIONS (2)
  - Product package associated injury [Not Recovered/Not Resolved]
  - Product packaging difficult to open [None]

NARRATIVE: CASE EVENT DATE: 20200318
